FAERS Safety Report 5352204-1 (Version None)
Quarter: 2007Q2

REPORT INFORMATION
  Report Type: 
  Country: None (occurrence: None)
  Receive Date: 20070521
  Receipt Date: 20070221
  Transmission Date: 20071010
  Serious: No
  Sender: FDA-Public Use
  Company Number: WAES 0702USA03864

PATIENT
  Age: 65 Year
  Sex: Female

DRUGS (7)
  1. JANUVIA [Suspect]
     Indication: DIABETES MELLITUS
     Dosage: 100 MG/DAILY/PO
     Route: 048
     Dates: start: 20061001
  2. AVANDIA [Concomitant]
  3. GLUCOPHAGE [Concomitant]
  4. HUMALOG [Concomitant]
  5. MICRONASE [Concomitant]
  6. ZOCOR [Concomitant]
  7. LISINOPRIL [Concomitant]

REACTIONS (2)
  - ERUCTATION [None]
  - GASTROOESOPHAGEAL REFLUX DISEASE [None]
